FAERS Safety Report 10996589 (Version 1)
Quarter: 2015Q2

REPORT INFORMATION
  Report Type: Spontaneous
  Country: US (occurrence: None)
  Receive Date: 20150407
  Receipt Date: 20150407
  Transmission Date: 20150821
  Serious: Yes (Hospitalization, Disabling, Other)
  Sender: FDA-Public Use
  Company Number: None

PATIENT
  Sex: Female
  Weight: 159 kg

DRUGS (10)
  1. HAND SANITIZER/ANTISEPTIC ON SKIN [Concomitant]
  2. SERTRALINE [Concomitant]
     Active Substance: SERTRALINE HYDROCHLORIDE
  3. RISPERDAL CONSTA [Suspect]
     Active Substance: RISPERIDONE
     Indication: SCHIZOAFFECTIVE DISORDER BIPOLAR TYPE
  4. RISPERDAL [Suspect]
     Active Substance: RISPERIDONE
     Indication: SCHIZOAFFECTIVE DISORDER BIPOLAR TYPE
     Route: 048
  5. RISPERDAL CONSTA [Suspect]
     Active Substance: RISPERIDONE
  6. VITAMIN D [Concomitant]
     Active Substance: CHOLECALCIFEROL
  7. ANTI ACID [Concomitant]
  8. LORAZAPAM [Concomitant]
     Active Substance: LORAZEPAM
  9. IRON MULTI-VITAMIN [Concomitant]
  10. RISPERDAL [Suspect]
     Active Substance: RISPERIDONE
     Route: 048

REACTIONS (3)
  - Drug ineffective [None]
  - Rash [None]
  - Wound [None]

NARRATIVE: CASE EVENT DATE: 2008
